FAERS Safety Report 7190225-7 (Version None)
Quarter: 2010Q4

REPORT INFORMATION
  Report Type: 
  Country: None (occurrence: None)
  Receive Date: 20101221
  Receipt Date: 20101221
  Transmission Date: 20110411
  Serious: No
  Sender: FDA-Public Use
  Company Number: None

PATIENT

DRUGS (6)
  1. CREST PRO HEALTH CLEAN MINT TOOTHPASTE [Suspect]
     Indication: DENTAL CARIES
     Dates: start: 20100801
  2. CREST PRO HEALTH CLEAN MINT TOOTHPASTE [Suspect]
     Indication: DENTAL DISORDER PROPHYLAXIS
     Dates: start: 20100801
  3. CREST PRO HEALTH CLEAN MINT TOOTHPASTE [Suspect]
     Indication: DENTAL FLUORIDE THERAPY
     Dates: start: 20100801
  4. CRESTOR [Concomitant]
  5. MEDITOPEROL [Concomitant]
  6. MULTIVITAMIN [Concomitant]

REACTIONS (9)
  - APHTHOUS STOMATITIS [None]
  - CHAPPED LIPS [None]
  - DRY MOUTH [None]
  - DYSGEUSIA [None]
  - LIP EXFOLIATION [None]
  - LIP SWELLING [None]
  - ORAL DISORDER [None]
  - OROPHARYNGEAL BLISTERING [None]
  - OROPHARYNGEAL PAIN [None]
